FAERS Safety Report 8221125-9 (Version None)
Quarter: 2012Q1

REPORT INFORMATION
  Report Type: 
  Country: None (occurrence: None)
  Receive Date: 20120320
  Receipt Date: 20120316
  Transmission Date: 20120608
  Serious: Yes (Other)
  Sender: FDA-Public Use
  Company Number: US-BAYER-2012-026741

PATIENT
  Age: 44 Year
  Sex: Male

DRUGS (3)
  1. MAGNEVIST [Suspect]
     Indication: HEADACHE
  2. MAGNEVIST [Suspect]
     Indication: ABNORMAL SENSATION IN EYE
  3. MAGNEVIST [Suspect]
     Indication: NUCLEAR MAGNETIC RESONANCE IMAGING BRAIN
     Dosage: UNK
     Dates: start: 20120307, end: 20120307

REACTIONS (7)
  - DISTURBANCE IN ATTENTION [None]
  - PHARYNGEAL OEDEMA [None]
  - EYELID OEDEMA [None]
  - FATIGUE [None]
  - MYDRIASIS [None]
  - URTICARIA [None]
  - TONGUE BLISTERING [None]
